FAERS Safety Report 23235688 (Version 2)
Quarter: 2023Q4

REPORT INFORMATION
  Report Type: Report from Study
  Country: TW (occurrence: TW)
  Receive Date: 20231128
  Receipt Date: 20231129
  Transmission Date: 20240110
  Serious: Yes (Life-Threatening, Hospitalization, Disabling, Other)
  Sender: FDA-Public Use
  Company Number: TW-PFIZER INC-PV202300192411

PATIENT
  Age: 68 Year
  Sex: Male
  Weight: 61.5 kg

DRUGS (1)
  1. ELRANATAMAB [Suspect]
     Active Substance: ELRANATAMAB
     Indication: Plasma cell myeloma
     Dosage: 76 MG, QW
     Route: 058
     Dates: start: 20230615, end: 20230726

REACTIONS (5)
  - Pneumocystis jirovecii pneumonia [Recovered/Resolved with Sequelae]
  - Diarrhoea infectious [Recovered/Resolved]
  - Bacteraemia [Recovered/Resolved]
  - Fall [Unknown]
  - Acetabulum fracture [Unknown]

NARRATIVE: CASE EVENT DATE: 20230731
